FAERS Safety Report 6137293-9 (Version None)
Quarter: 2009Q1

REPORT INFORMATION
  Report Type: 
  Country: None (occurrence: None)
  Receive Date: 20090326
  Receipt Date: 20090326
  Transmission Date: 20090719
  Serious: Yes (Life-Threatening, Disabling, Other)
  Sender: FDA-Public Use
  Company Number: None

PATIENT
  Age: 17 Year
  Sex: Female
  Weight: 47.6277 kg

DRUGS (1)
  1. SOLODYN [Suspect]
     Indication: ACNE
     Dosage: 1 TABLET DAILY P.O. / ORAL 11-20-08 THROUGH 12-4-09 (OVER 11 MOS.)
     Route: 048
     Dates: start: 20081120

REACTIONS (10)
  - ECONOMIC PROBLEM [None]
  - HEPATITIS [None]
  - HYPERSOMNIA [None]
  - IMPAIRED DRIVING ABILITY [None]
  - IMPAIRED WORK ABILITY [None]
  - INFLAMMATION [None]
  - LABORATORY TEST ABNORMAL [None]
  - PAIN [None]
  - SYSTEMIC LUPUS ERYTHEMATOSUS [None]
  - VASCULITIS [None]
